FAERS Safety Report 10076198 (Version 1)
Quarter: 2014Q2

REPORT INFORMATION
  Report Type: Spontaneous
  Country: US (occurrence: US)
  Receive Date: 20140414
  Receipt Date: 20140414
  Transmission Date: 20141212
  Serious: Yes (Other)
  Sender: FDA-Public Use
  Company Number: US-JNJFOC-20140405359

PATIENT
  Age: 34 Year
  Sex: Female
  Weight: 69 kg

DRUGS (12)
  1. DOXORUBICIN [Suspect]
     Indication: BREAST CANCER
     Route: 042
  2. CYCLOPHOSPHAMIDE [Suspect]
     Indication: BREAST CANCER
     Route: 065
  3. TRASTUZUMAB [Suspect]
     Indication: METASTASES TO LUNG
     Route: 065
  4. DOLASETRON [Concomitant]
     Route: 065
  5. METOCLOPRAMIDE [Concomitant]
     Route: 065
  6. PROMETHAZINE [Concomitant]
     Route: 065
  7. APREPITANT [Concomitant]
     Route: 065
  8. DOXYLAMINE [Concomitant]
     Route: 065
  9. ACETAMINOPHEN [Concomitant]
     Route: 065
  10. HYDROCODONE [Concomitant]
     Route: 065
  11. POLYETHYLENE GLYCOL [Concomitant]
     Route: 065
  12. MULTIVITAMINS [Concomitant]
     Route: 065

REACTIONS (4)
  - Cardiac failure congestive [Unknown]
  - Exposure during pregnancy [Recovered/Resolved]
  - Drug clearance decreased [Unknown]
  - Contusion [Unknown]
